FAERS Safety Report 11081959 (Version 1)
Quarter: 2015Q2

REPORT INFORMATION
  Report Type: Spontaneous
  Country: JP (occurrence: JP)
  Receive Date: 20150501
  Receipt Date: 20150501
  Transmission Date: 20150821
  Serious: Yes (Death, Hospitalization)
  Sender: FDA-Public Use
  Company Number: JP-NOVOPROD-445981

PATIENT
  Age: 79 Year
  Sex: Male
  Weight: 42 kg

DRUGS (9)
  1. APIDRA [Suspect]
     Active Substance: INSULIN GLULISINE
     Dosage: 12 U, QD (6-3-3)
     Route: 058
     Dates: start: 20140802, end: 20140814
  2. NOVORAPID [Suspect]
     Active Substance: INSULIN ASPART
     Dosage: UNK
     Route: 058
     Dates: start: 20140912, end: 20141021
  3. APIDRA [Suspect]
     Active Substance: INSULIN GLULISINE
     Dosage: 10 U, QD (4-3-3)
     Route: 058
     Dates: start: 20140815, end: 20140901
  4. NOVORAPID [Suspect]
     Active Substance: INSULIN ASPART
     Indication: FULMINANT TYPE 1 DIABETES MELLITUS
     Dosage: UNK
     Route: 058
     Dates: start: 20140901, end: 20140911
  5. TRESIBA CHU FLEXTOUCH [Suspect]
     Active Substance: INSULIN DEGLUDEC
     Indication: FULMINANT TYPE 1 DIABETES MELLITUS
     Dosage: 8 U, QD
     Route: 058
     Dates: start: 20130624, end: 20140814
  6. HUMULIN R [Suspect]
     Active Substance: INSULIN HUMAN
     Indication: FULMINANT TYPE 1 DIABETES MELLITUS
     Dosage: UNK
     Route: 058
     Dates: start: 20140912, end: 20141021
  7. TRESIBA CHU FLEXTOUCH [Suspect]
     Active Substance: INSULIN DEGLUDEC
     Dosage: 0.5 U, QD
     Route: 058
     Dates: start: 20140901, end: 20140912
  8. APIDRA [Suspect]
     Active Substance: INSULIN GLULISINE
     Indication: FULMINANT TYPE 1 DIABETES MELLITUS
     Dosage: TID
     Route: 058
     Dates: start: 20121015, end: 20140801
  9. LANTUS [Suspect]
     Active Substance: INSULIN GLARGINE
     Indication: FULMINANT TYPE 1 DIABETES MELLITUS
     Dosage: 6 U, QD
     Route: 065
     Dates: start: 20140815, end: 20140901

REACTIONS (3)
  - Hypoglycaemic encephalopathy [Fatal]
  - Condition aggravated [Fatal]
  - Pneumonia [Fatal]

NARRATIVE: CASE EVENT DATE: 2014
